FAERS Safety Report 7212771-X (Version None)
Quarter: 2011Q1

REPORT INFORMATION
  Report Type: 
  Country: None (occurrence: None)
  Receive Date: 20110106
  Receipt Date: 20110104
  Transmission Date: 20110831
  Serious: Yes (Hospitalization, Other)
  Sender: FDA-Public Use
  Company Number: BR-ROCHE-684198

PATIENT
  Sex: Female
  Weight: 75 kg

DRUGS (4)
  1. PEGASYS [Suspect]
     Route: 058
     Dates: start: 20091001, end: 20100101
  2. RIBAVARIN [Suspect]
     Dosage: 4 TABLETS DAILY
     Route: 065
  3. PREDNISONE [Concomitant]
     Dates: start: 20020101
  4. PEGASYS [Suspect]
     Route: 058
     Dates: start: 20070101, end: 20080101

REACTIONS (27)
  - VOMITING [None]
  - DEPRESSION [None]
  - ABDOMINAL PAIN [None]
  - DRUG INEFFECTIVE [None]
  - RETCHING [None]
  - OVARIAN CYST [None]
  - INSOMNIA [None]
  - BIPOLAR DISORDER [None]
  - OCULAR HYPERAEMIA [None]
  - EPISTAXIS [None]
  - PYREXIA [None]
  - SPEECH DISORDER [None]
  - MUSCLE RIGIDITY [None]
  - LYMPHADENECTOMY [None]
  - ANAEMIA [None]
  - DECREASED APPETITE [None]
  - CERVICAL DYSPLASIA [None]
  - MYALGIA [None]
  - BONE PAIN [None]
  - EYE DISCHARGE [None]
  - WEIGHT INCREASED [None]
  - ALOPECIA [None]
  - MOUTH HAEMORRHAGE [None]
  - GENERALISED OEDEMA [None]
  - HEPATITIS [None]
  - EAR HAEMORRHAGE [None]
  - NUCHAL RIGIDITY [None]
